FAERS Safety Report 17697658 (Version 3)
Quarter: 2020Q2

REPORT INFORMATION
  Report Type: Report from Study
  Country: US (occurrence: US)
  Receive Date: 20200423
  Receipt Date: 20200615
  Transmission Date: 20200714
  Serious: Yes (Life-Threatening, Hospitalization, Other)
  Sender: FDA-Public Use
  Company Number: US-BRISTOL-MYERS SQUIBB COMPANY-BMS-2020-032926

PATIENT
  Age: 60 Year
  Sex: Male
  Weight: 63.1 kg

DRUGS (2)
  1. IPILIMUMAB [Suspect]
     Active Substance: IPILIMUMAB
     Indication: GASTROINTESTINAL STROMAL TUMOUR
     Dosage: UNK
     Route: 065
  2. NIVOLUMAB [Suspect]
     Active Substance: NIVOLUMAB
     Indication: GASTROINTESTINAL STROMAL TUMOUR
     Dosage: UNK
     Route: 065

REACTIONS (6)
  - Bile duct obstruction [Unknown]
  - Cholelithiasis [Unknown]
  - Cholangitis [Unknown]
  - Pneumonia [Unknown]
  - Pyrexia [Unknown]
  - Septic shock [Unknown]

NARRATIVE: CASE EVENT DATE: 20200419
